FAERS Safety Report 5965800-5 (Version None)
Quarter: 2008Q4

REPORT INFORMATION
  Report Type: 
  Country: None (occurrence: None)
  Receive Date: 20081125
  Receipt Date: 20081120
  Transmission Date: 20090506
  Serious: Yes (Hospitalization, Other)
  Sender: FDA-Public Use
  Company Number: US-MERCK-0510USA09125

PATIENT
  Age: 66 Year
  Sex: Female

DRUGS (4)
  1. FOSAMAX [Suspect]
     Indication: OSTEOPOROSIS
     Route: 048
     Dates: start: 20020101, end: 20050101
  2. VIOXX [Concomitant]
     Route: 065
  3. NEXIUM [Concomitant]
     Route: 065
  4. ULTRAM [Concomitant]
     Route: 065

REACTIONS (25)
  - ABDOMINAL DISTENSION [None]
  - ADVERSE DRUG REACTION [None]
  - AMINO ACID LEVEL ABNORMAL [None]
  - ANAEMIA [None]
  - ANXIETY [None]
  - ANXIETY DISORDER [None]
  - BLOOD CHOLESTEROL INCREASED [None]
  - BLOOD PRESSURE [None]
  - CONVULSION [None]
  - DENTAL CARIES [None]
  - DEPRESSION [None]
  - DIZZINESS [None]
  - DRUG DEPENDENCE [None]
  - DRUG WITHDRAWAL SYNDROME [None]
  - FLATULENCE [None]
  - GASTROINTESTINAL PAIN [None]
  - HAEMORRHOIDS [None]
  - HERPES ZOSTER [None]
  - NAUSEA [None]
  - OSTEOMYELITIS [None]
  - OSTEONECROSIS [None]
  - PAIN [None]
  - RECTAL HAEMORRHAGE [None]
  - TOOTH ABSCESS [None]
  - TOOTH IMPACTED [None]
